FAERS Safety Report 5238565-2 (Version None)
Quarter: 2007Q1

REPORT INFORMATION
  Report Type: 
  Country: None (occurrence: None)
  Receive Date: 20070215
  Receipt Date: 20070208
  Transmission Date: 20070707
  Serious: Yes (Disabling, Other)
  Sender: FDA-Public Use
  Company Number: 2007UW02808

PATIENT
  Age: 62 Year
  Sex: Female

DRUGS (1)
  1. ATENOLOL [Suspect]
     Indication: HYPERTENSION
     Route: 048
     Dates: start: 19860101, end: 20060901

REACTIONS (3)
  - APHASIA [None]
  - CEREBRAL ISCHAEMIA [None]
  - HALLUCINATION [None]
